FAERS Safety Report 4972426-9 (Version None)
Quarter: 2006Q2

REPORT INFORMATION
  Report Type: 
  Country: None (occurrence: None)
  Receive Date: 20060413
  Receipt Date: 20051025
  Transmission Date: 20061013
  Serious: Yes (Hospitalization)
  Sender: FDA-Public Use
  Company Number: US-MERCK-0510USA09227

PATIENT
  Age: 51 Year
  Sex: Female
  Weight: 56 kg

DRUGS (7)
  1. VIOXX [Suspect]
     Indication: ARTHRITIS
     Route: 048
     Dates: start: 20000729, end: 20000731
  2. VIOXX [Suspect]
     Route: 048
     Dates: end: 20030928
  3. VIOXX [Suspect]
     Route: 048
     Dates: end: 20030928
  4. VIOXX [Suspect]
     Indication: BACK PAIN
     Route: 048
     Dates: start: 20000729, end: 20000731
  5. VIOXX [Suspect]
     Route: 048
     Dates: end: 20030928
  6. VIOXX [Suspect]
     Route: 048
     Dates: end: 20030928
  7. COUMADIN [Concomitant]
     Route: 065

REACTIONS (9)
  - CHEST DISCOMFORT [None]
  - CHRONIC OBSTRUCTIVE PULMONARY DISEASE [None]
  - COLONIC POLYP [None]
  - CORONARY ARTERY DISEASE [None]
  - DYSPHAGIA [None]
  - MYOCARDIAL INFARCTION [None]
  - PERIPHERAL VASCULAR DISORDER [None]
  - PNEUMONIA [None]
  - PROTHROMBIN TIME PROLONGED [None]
